FAERS Safety Report 17928301 (Version 1)
Quarter: 2020Q2

REPORT INFORMATION
  Report Type: Spontaneous
  Country: US (occurrence: US)
  Receive Date: 20200622
  Receipt Date: 20200622
  Transmission Date: 20200714
  Serious: No
  Sender: FDA-Public Use
  Company Number: None

PATIENT
  Age: 70 Year
  Sex: Male
  Weight: 81.8 kg

DRUGS (17)
  1. CEFEPIME [Concomitant]
     Active Substance: CEFEPIME HYDROCHLORIDE
     Dates: start: 20200619, end: 20200621
  2. PLASMA-LYTE-A [Concomitant]
     Dates: end: 20200620
  3. POTASSIUM CHLORIDE. [Concomitant]
     Active Substance: POTASSIUM CHLORIDE
     Dates: start: 20200620, end: 20200622
  4. PANTOPRAZOLE [Concomitant]
     Active Substance: PANTOPRAZOLE
  5. TAMSULOSIN [Concomitant]
     Active Substance: TAMSULOSIN
     Dates: start: 20200620
  6. FINASTERIDE. [Concomitant]
     Active Substance: FINASTERIDE
     Dates: end: 20200622
  7. LORAZEPAM. [Concomitant]
     Active Substance: LORAZEPAM
     Dates: start: 20200620, end: 20200620
  8. OLANZAPINE. [Concomitant]
     Active Substance: OLANZAPINE
     Dates: start: 20200621, end: 20200621
  9. ALBUTEROL NEBULIZER [Concomitant]
     Active Substance: ALBUTEROL
     Dates: start: 20200621
  10. AZITHROMYCIN ANHYDROUS. [Concomitant]
     Active Substance: AZITHROMYCIN ANHYDROUS
     Dates: start: 20200621
  11. CEFTRIAXONE. [Concomitant]
     Active Substance: CEFTRIAXONE
     Dates: start: 20200621
  12. ENOXAPARIN [Concomitant]
     Active Substance: ENOXAPARIN
  13. INSULIN (LONG ACTING, SHORT ACTING, AND INFUSION) [Concomitant]
     Dates: start: 20200619
  14. SENNA/DOCUSATE [Concomitant]
     Dates: start: 20200619
  15. DEXAMETHASONE. [Concomitant]
     Active Substance: DEXAMETHASONE
     Dates: start: 20200619, end: 20200620
  16. REMDESIVIR. [Suspect]
     Active Substance: REMDESIVIR
     Indication: COVID-19
     Dates: start: 20200620, end: 20200622
  17. LINEZOLID. [Concomitant]
     Active Substance: LINEZOLID
     Dates: start: 20200618, end: 20200620

REACTIONS (1)
  - Alanine aminotransferase increased [None]

NARRATIVE: CASE EVENT DATE: 20200622
